FAERS Safety Report 21344440 (Version 1)
Quarter: 2022Q3

REPORT INFORMATION
  Report Type: Spontaneous
  Country: US (occurrence: None)
  Receive Date: 20220916
  Receipt Date: 20220916
  Transmission Date: 20221027
  Serious: Yes (Hospitalization)
  Sender: FDA-Public Use
  Company Number: None

PATIENT
  Age: 48 Year
  Sex: Female
  Weight: 55 kg

DRUGS (3)
  1. PAXLOVID [Suspect]
     Active Substance: NIRMATRELVIR\RITONAVIR
     Indication: COVID-19
     Dates: start: 20220915, end: 20220916
  2. DIVALPROEX SODIUM [Suspect]
     Active Substance: DIVALPROEX SODIUM
     Dates: start: 20220530
  3. KEPPRA [Suspect]
     Active Substance: LEVETIRACETAM
     Dates: start: 20220530

REACTIONS (6)
  - Generalised tonic-clonic seizure [None]
  - Headache [None]
  - Drug interaction [None]
  - Cough [None]
  - Pain [None]
  - Limb discomfort [None]

NARRATIVE: CASE EVENT DATE: 20220916
